FAERS Safety Report 24671520 (Version 1)
Quarter: 2024Q4

REPORT INFORMATION
  Report Type: Spontaneous
  Country: US (occurrence: US)
  Receive Date: 20241127
  Receipt Date: 20241127
  Transmission Date: 20250115
  Serious: Yes (Hospitalization, Other)
  Sender: PFIZER
  Company Number: US-PFIZER INC-202400306772

PATIENT
  Sex: Female
  Weight: 55.33 kg

DRUGS (2)
  1. GEMCITABINE HYDROCHLORIDE [Suspect]
     Active Substance: GEMCITABINE HYDROCHLORIDE
     Dosage: UNK
     Dates: start: 2022
  2. CISPLATIN [Suspect]
     Active Substance: CISPLATIN
     Dosage: UNK
     Dates: start: 2022

REACTIONS (3)
  - Intestinal obstruction [Unknown]
  - Partial cystectomy [Unknown]
  - Oedema [Unknown]

NARRATIVE: CASE EVENT DATE: 20220101
